FAERS Safety Report 9831439 (Version 4)
Quarter: 2014Q2

REPORT INFORMATION
  Report Type: Spontaneous
  Country: GB (occurrence: GB)
  Receive Date: 20140121
  Receipt Date: 20140606
  Transmission Date: 20141212
  Serious: Yes (Other)
  Sender: FDA-Public Use
  Company Number: GB-009507513-1401GBR005740

PATIENT
  Age: 69 Year
  Sex: Female

DRUGS (7)
  1. SIMVASTATIN [Suspect]
     Indication: HYPERCHOLESTEROLAEMIA
     Dosage: 20 MG, IN THE MORNING
     Route: 048
     Dates: start: 20120601, end: 201209
  2. SIMVASTATIN [Suspect]
     Dosage: 10 MG, IN THE MORNING
     Route: 048
     Dates: start: 201209, end: 201311
  3. COD LIVER OIL [Concomitant]
     Dosage: OCCASIONALLY
  4. COD LIVER OIL [Concomitant]
     Dosage: OCCASIONALLY
  5. GARLIC [Concomitant]
     Dosage: OCCASIONALLY
  6. GARLIC [Concomitant]
     Dosage: OCCASIONALLY
  7. VITAMINS (UNSPECIFIED) [Concomitant]
     Dosage: OCCASIONALLY

REACTIONS (4)
  - Muscle atrophy [Not Recovered/Not Resolved]
  - Weight decreased [Not Recovered/Not Resolved]
  - Breast atrophy [Not Recovered/Not Resolved]
  - Alopecia [Not Recovered/Not Resolved]
